FAERS Safety Report 7946023-7 (Version None)
Quarter: 2011Q4

REPORT INFORMATION
  Report Type: 
  Country: None (occurrence: None)
  Receive Date: 20111129
  Receipt Date: 20111122
  Transmission Date: 20120403
  Serious: Yes (Death, Hospitalization)
  Sender: FDA-Public Use
  Company Number: US-GLAXOSMITHKLINE-A0840603A

PATIENT
  Age: 58 Year
  Sex: Male
  Weight: 104.5 kg

DRUGS (5)
  1. VIAGRA [Concomitant]
  2. GLUCOTROL [Concomitant]
  3. ANDROGEL [Concomitant]
  4. GLUCOPHAGE [Concomitant]
  5. AVANDIA [Suspect]
     Indication: DIABETES MELLITUS
     Dosage: 4MG PER DAY
     Route: 048
     Dates: start: 20030101, end: 20060501

REACTIONS (4)
  - MYOCARDIAL INFARCTION [None]
  - ANGIOPATHY [None]
  - CORONARY ARTERY DISEASE [None]
  - SUDDEN CARDIAC DEATH [None]
